FAERS Safety Report 10015008 (Version 2)
Quarter: 2014Q2

REPORT INFORMATION
  Report Type: Spontaneous
  Country: US (occurrence: US)
  Receive Date: 20140317
  Receipt Date: 20140404
  Transmission Date: 20141212
  Serious: Yes (Death)
  Sender: FDA-Public Use
  Company Number: US-ACTELION-A-US2014-95955

PATIENT
  Age: 87 Year
  Sex: Male

DRUGS (2)
  1. OPSUMIT [Suspect]
     Indication: PULMONARY ARTERIAL HYPERTENSION
     Dosage: 10 MG, UNK
     Route: 048
     Dates: start: 201402, end: 20140315
  2. OXYGEN [Concomitant]

REACTIONS (4)
  - Cardiomyopathy [Fatal]
  - Coronary artery disease [Fatal]
  - Mitral valve incompetence [Fatal]
  - Cardiac failure congestive [Fatal]
